FAERS Safety Report 7793424-6 (Version None)
Quarter: 2011Q4

REPORT INFORMATION
  Report Type: 
  Country: None (occurrence: None)
  Receive Date: 20111003
  Receipt Date: 20110926
  Transmission Date: 20120403
  Serious: Yes (Other)
  Sender: FDA-Public Use
  Company Number: PHHY2011CA85958

PATIENT
  Age: 7 Year
  Sex: Male

DRUGS (1)
  1. AZITHROMYCIN [Suspect]
     Route: 048

REACTIONS (3)
  - SKIN DISCOLOURATION [None]
  - AGITATION [None]
  - HYPERHIDROSIS [None]
